FAERS Safety Report 7565302-9 (Version None)
Quarter: 2011Q2

REPORT INFORMATION
  Report Type: 
  Country: None (occurrence: None)
  Receive Date: 20110623
  Receipt Date: 20110615
  Transmission Date: 20111010
  Serious: Yes (Other)
  Sender: FDA-Public Use
  Company Number: US-BIOGENIDEC-2011BI002465

PATIENT
  Age: 29 Year
  Sex: Female

DRUGS (6)
  1. VITAMIN D [Concomitant]
  2. PRENATAL VITAMINS [Concomitant]
  3. PREDNISONE [Concomitant]
     Dates: end: 20100801
  4. PEPCID [Concomitant]
     Dates: end: 20100801
  5. VISTARIL [Concomitant]
     Dates: end: 20100801
  6. TYSABRI [Suspect]
     Indication: MULTIPLE SCLEROSIS
     Route: 042
     Dates: start: 20090926, end: 20100619

REACTIONS (2)
  - CAESAREAN SECTION [None]
  - PREGNANCY [None]
